FAERS Safety Report 10419541 (Version 1)
Quarter: 2014Q3

REPORT INFORMATION
  Report Type: Spontaneous
  Country: MX (occurrence: MX)
  Receive Date: 20140829
  Receipt Date: 20140829
  Transmission Date: 20150326
  Serious: Yes (Life-Threatening)
  Sender: FDA-Public Use
  Company Number: MX-BRACCO-000045

PATIENT
  Age: 77 Year
  Sex: Male

DRUGS (1)
  1. BARIUM [Suspect]
     Active Substance: BARIUM
     Indication: BARIUM SWALLOW
     Route: 048

REACTIONS (3)
  - Cardiac arrest [Unknown]
  - Acute respiratory distress syndrome [Unknown]
  - Foreign body aspiration [Unknown]
